FAERS Safety Report 16400313 (Version 1)
Quarter: 2019Q2

REPORT INFORMATION
  Report Type: Spontaneous
  Country: US (occurrence: US)
  Receive Date: 20190606
  Receipt Date: 20190606
  Transmission Date: 20190711
  Serious: No
  Sender: FDA-Public Use
  Company Number: US-ALLERGAN-1838704US

PATIENT
  Age: 46 Year
  Sex: Female

DRUGS (2)
  1. KYBELLA [Suspect]
     Active Substance: DEOXYCHOLIC ACID
     Indication: FAT TISSUE INCREASED
     Dosage: 0.2 UNK, UNK
     Route: 058
     Dates: start: 20180720, end: 20180720
  2. IBUPROFEN. [Concomitant]
     Active Substance: IBUPROFEN
     Indication: PAIN
     Dosage: UNK UNK, PRN
     Route: 065

REACTIONS (7)
  - Skin discolouration [Unknown]
  - Swelling [Unknown]
  - Administration site scab [Unknown]
  - Application site pain [Unknown]
  - Injection site ulcer [Unknown]
  - Neck pain [Unknown]
  - Injection site bruising [Unknown]

NARRATIVE: CASE EVENT DATE: 201807
